FAERS Safety Report 6609422-1 (Version None)
Quarter: 2010Q1

REPORT INFORMATION
  Report Type: 
  Country: None (occurrence: None)
  Receive Date: 20100302
  Receipt Date: 20100219
  Transmission Date: 20100710
  Serious: Yes (Hospitalization, Other)
  Sender: FDA-Public Use
  Company Number: US-ELI_LILLY_AND_COMPANY-US201002006321

PATIENT
  Age: 58 Year
  Sex: Male
  Weight: 70.476 kg

DRUGS (12)
  1. GEMZAR [Suspect]
     Indication: TRANSITIONAL CELL CARCINOMA
     Dosage: 1000 MG/M2, UNK
     Route: 042
     Dates: start: 20090428
  2. CISPLATIN [Concomitant]
     Indication: TRANSITIONAL CELL CARCINOMA
     Dosage: 70 MG/M2, UNK
     Route: 042
     Dates: start: 20090428
  3. CETUXIMAB [Concomitant]
     Indication: TRANSITIONAL CELL CARCINOMA
     Dosage: 500 MG/M2, UNK
     Route: 042
     Dates: start: 20090428, end: 20090512
  4. COREG [Concomitant]
     Indication: HYPERTENSION
     Route: 048
  5. ONDANSETRON [Concomitant]
     Indication: NAUSEA
     Route: 048
  6. HALCION [Concomitant]
     Indication: SLEEP DISORDER
     Dosage: 0.25 MG, AS NEEDED
  7. NAPROXEN [Concomitant]
     Dosage: 500 MG, 2/D
  8. CRESTOR [Concomitant]
     Indication: HYPERLIPIDAEMIA
     Dosage: 20 MG, DAILY (1/D)
     Route: 048
  9. OXYCODONE [Concomitant]
     Indication: PAIN
     Dosage: 10 MG, AS NEEDED
  10. FENTANYL [Concomitant]
     Dosage: 100 UG, EVERY 72 HRS
     Route: 062
  11. VITAMIN C [Concomitant]
     Dosage: 500 MG, 2/D
     Route: 048
  12. NEXIUM [Concomitant]
     Dates: start: 20090603

REACTIONS (6)
  - ASCITES [None]
  - DEHYDRATION [None]
  - NAUSEA [None]
  - PLEURAL EFFUSION [None]
  - RENAL FAILURE ACUTE [None]
  - VOMITING [None]
